FAERS Safety Report 8961686 (Version 1)
Quarter: 2012Q4

REPORT INFORMATION
  Report Type: 
  Country: JP (occurrence: JP)
  Receive Date: 20121213
  Receipt Date: 20121213
  Transmission Date: 20130627
  Serious: Yes (Hospitalization)
  Sender: FDA-Public Use
  Company Number: JP-SANOFI-AVENTIS-2012SA090928

PATIENT
  Age: 70 Year
  Sex: Female

DRUGS (2)
  1. MYSLEE [Suspect]
     Indication: DEPRESSION
     Route: 048
  2. MEILAX [Concomitant]
     Indication: DEPRESSION
     Dosage: had been taking for 6 years

REACTIONS (4)
  - Coma [Recovering/Resolving]
  - Coma blister [Recovering/Resolving]
  - Toxicity to various agents [Unknown]
  - Off label use [Unknown]
